FAERS Safety Report 6824433-9 (Version None)
Quarter: 2010Q3

REPORT INFORMATION
  Report Type: 
  Country: None (occurrence: None)
  Receive Date: 20100708
  Receipt Date: 20061031
  Transmission Date: 20110219
  Serious: No
  Sender: FDA-Public Use
  Company Number: US-PFIZER INC-2006134755

PATIENT
  Sex: Male

DRUGS (6)
  1. CHANTIX [Suspect]
     Indication: EX-TOBACCO USER
     Dates: start: 20061001, end: 20061001
  2. WARFARIN SODIUM [Concomitant]
  3. DIGOXIN [Concomitant]
  4. LOVASTATIN [Concomitant]
  5. CARTIA XT [Concomitant]
  6. VITAMINS [Concomitant]

REACTIONS (5)
  - DRUG INEFFECTIVE [None]
  - INSOMNIA [None]
  - MIDDLE INSOMNIA [None]
  - RESTLESSNESS [None]
  - TOBACCO USER [None]
